FAERS Safety Report 11051183 (Version 1)
Quarter: 2015Q2

REPORT INFORMATION
  Report Type: Spontaneous
  Country: FR (occurrence: FR)
  Receive Date: 20150421
  Receipt Date: 20150421
  Transmission Date: 20150821
  Serious: Yes (Hospitalization)
  Sender: FDA-Public Use
  Company Number: FR-PFIZER INC-2015128573

PATIENT
  Age: 67 Year
  Sex: Female

DRUGS (7)
  1. HYPNOVEL /00634101/ [Concomitant]
     Active Substance: MIDAZOLAM\MIDAZOLAM HYDROCHLORIDE
  2. SEVORANE [Concomitant]
     Active Substance: SEVOFLURANE
  3. LYRICA [Suspect]
     Active Substance: PREGABALIN
     Indication: ANAESTHETIC PREMEDICATION
     Dosage: 300 MG, SINGLE
     Route: 048
     Dates: start: 20150303, end: 20150303
  4. CEFAZOLINE [Concomitant]
     Active Substance: CEFAZOLIN SODIUM
  5. SUFENTA [Concomitant]
     Active Substance: SUFENTANIL CITRATE
  6. DEXAMETHASONE. [Concomitant]
     Active Substance: DEXAMETHASONE
  7. PROPOFOL. [Concomitant]
     Active Substance: PROPOFOL

REACTIONS (7)
  - Speech disorder [Recovered/Resolved]
  - Nausea [Recovered/Resolved]
  - Chromatopsia [Recovered/Resolved]
  - Delayed recovery from anaesthesia [Recovered/Resolved]
  - Somnolence [Recovered/Resolved]
  - Vision blurred [Recovered/Resolved]
  - Vomiting [Recovered/Resolved]

NARRATIVE: CASE EVENT DATE: 20150303
